FAERS Safety Report 7389851-1 (Version None)
Quarter: 2011Q1

REPORT INFORMATION
  Report Type: 
  Country: None (occurrence: None)
  Receive Date: 20110325
  Receipt Date: 20110314
  Transmission Date: 20110831
  Serious: Yes (Hospitalization)
  Sender: FDA-Public Use
  Company Number: 2010SP027838

PATIENT
  Age: 14 Month
  Sex: Male

DRUGS (1)
  1. DESLORATADINE [Suspect]
     Indication: RHINITIS ALLERGIC
     Dosage: 1.25 MG; QD; PO; 1.25 MG; QD; PO
     Route: 048
     Dates: start: 20081025, end: 20081108

REACTIONS (1)
  - PNEUMONIA [None]
